FAERS Safety Report 7132739-1 (Version None)
Quarter: 2010Q4

REPORT INFORMATION
  Report Type: 
  Country: None (occurrence: None)
  Receive Date: 20101129
  Receipt Date: 20101129
  Transmission Date: 20110411
  Serious: Yes (Other)
  Sender: FDA-Public Use
  Company Number: None

PATIENT
  Sex: Female

DRUGS (1)
  1. LIDOCAINE HCL [Suspect]
     Indication: LOCAL ANAESTHESIA
     Dosage: 5 ML TO 10 ML ONCE SQ
     Route: 058
     Dates: start: 20101115, end: 20101118

REACTIONS (3)
  - PAIN [None]
  - PRESYNCOPE [None]
  - PRODUCT MEASURED POTENCY ISSUE [None]
